FAERS Safety Report 9404943 (Version 1)
Quarter: 2013Q3

REPORT INFORMATION
  Report Type: Spontaneous
  Country: US (occurrence: US)
  Receive Date: 20130717
  Receipt Date: 20130717
  Transmission Date: 20140515
  Serious: Yes (Death)
  Sender: FDA-Public Use
  Company Number: US-BRISTOL-MYERS SQUIBB COMPANY-19009646

PATIENT
  Age: 37 Year
  Sex: Female

DRUGS (5)
  1. YERVOY [Suspect]
     Indication: MALIGNANT MELANOMA
     Dosage: SECOND DOSE:20MAY2013
     Dates: start: 20130430
  2. ATIVAN [Concomitant]
  3. FLUCONAZOLE [Concomitant]
  4. ZOFRAN [Concomitant]
  5. DECADRON [Concomitant]

REACTIONS (1)
  - Malignant neoplasm progression [Fatal]
